FAERS Safety Report 4339006-X (Version None)
Quarter: 2004Q2

REPORT INFORMATION
  Report Type: 
  Country: None (occurrence: None)
  Receive Date: 20040409
  Receipt Date: 20040402
  Transmission Date: 20050107
  Serious: Yes (Disabling)
  Sender: FDA-Public Use
  Company Number: 2004SE01923

PATIENT
  Age: 82 Year
  Sex: Female

DRUGS (1)
  1. ARIMIDEX [Suspect]
     Indication: BREAST CANCER STAGE II
     Dates: start: 20031201, end: 20040101

REACTIONS (3)
  - GINGIVITIS [None]
  - TOOTH DISORDER [None]
  - TOOTH LOSS [None]
